FAERS Safety Report 8806225 (Version 1)
Quarter: 2012Q4

REPORT INFORMATION
  Report Type: 
  Country: AU (occurrence: AU)
  Receive Date: 20120925
  Receipt Date: 20120925
  Transmission Date: 20130627
  Serious: Yes (Other)
  Sender: FDA-Public Use
  Company Number: PHHY2012AU047995

PATIENT
  Age: 49 Year
  Sex: Female

DRUGS (1)
  1. ESTRADERM MX [Suspect]
     Indication: HORMONE REPLACEMENT THERAPY
     Dosage: 1 DF, QW2
     Route: 062
     Dates: start: 20120528, end: 20120531

REACTIONS (4)
  - Palpitations [Recovered/Resolved]
  - Chest pain [Recovered/Resolved]
  - Dry throat [Recovered/Resolved]
  - Hot flush [Recovered/Resolved]
